FAERS Safety Report 11371906 (Version 1)
Quarter: 2015Q3

REPORT INFORMATION
  Report Type: Spontaneous
  Country: GB (occurrence: GB)
  Receive Date: 20150812
  Receipt Date: 20150812
  Transmission Date: 20151125
  Serious: Yes (Other)
  Sender: FDA-Public Use
  Company Number: PHFR2015GB005900

PATIENT
  Age: 65 Year
  Sex: Female
  Weight: 80 kg

DRUGS (4)
  1. CARBAMAZEPINE. [Suspect]
     Active Substance: CARBAMAZEPINE
     Dosage: 400 MG, UNK
     Route: 048
  2. CARBAMAZEPINE. [Suspect]
     Active Substance: CARBAMAZEPINE
     Dosage: 700 MG, UNK
     Route: 048
  3. CARBAMAZEPINE. [Suspect]
     Active Substance: CARBAMAZEPINE
     Indication: TRIGEMINAL NEURALGIA
     Dosage: 400 MG, UNK
     Route: 048
     Dates: start: 2011
  4. LEVOTHYROXINE. [Concomitant]
     Active Substance: LEVOTHYROXINE
     Indication: PRODUCT USED FOR UNKNOWN INDICATION
     Route: 065

REACTIONS (2)
  - Photopsia [Not Recovered/Not Resolved]
  - Visual acuity reduced [Not Recovered/Not Resolved]

NARRATIVE: CASE EVENT DATE: 20150617
